FAERS Safety Report 7150798-7 (Version None)
Quarter: 2010Q4

REPORT INFORMATION
  Report Type: 
  Country: None (occurrence: None)
  Receive Date: 20101210
  Receipt Date: 20101130
  Transmission Date: 20110411
  Serious: Yes (Other)
  Sender: FDA-Public Use
  Company Number: US-JNJCH-2010027757

PATIENT
  Age: 48 Year
  Sex: Female
  Weight: 113.4 kg

DRUGS (1)
  1. ROGAINE [Suspect]
     Indication: ALOPECIA
     Dosage: TEXT:DROPPERFUL TWICE PER DAY
     Route: 061
     Dates: start: 20101101, end: 20101125

REACTIONS (3)
  - ALOPECIA [None]
  - APPLICATION SITE SCAB [None]
  - BURNING SENSATION [None]
